FAERS Safety Report 7990074-3 (Version None)
Quarter: 2011Q4

REPORT INFORMATION
  Report Type: 
  Country: None (occurrence: None)
  Receive Date: 20111219
  Receipt Date: 20111018
  Transmission Date: 20120403
  Serious: No
  Sender: FDA-Public Use
  Company Number: US-ASTRAZENECA-2011SE63081

PATIENT
  Age: 56 Year
  Sex: Male

DRUGS (1)
  1. CRESTOR [Suspect]
     Dosage: CRESTOR 10MG CUT IN HALF
     Route: 048

REACTIONS (2)
  - THERAPEUTIC RESPONSE INCREASED [None]
  - WRONG TECHNIQUE IN DRUG USAGE PROCESS [None]
